FAERS Safety Report 25302339 (Version 1)
Quarter: 2025Q2

REPORT INFORMATION
  Report Type: Spontaneous
  Country: CN (occurrence: CN)
  Receive Date: 20250512
  Receipt Date: 20250512
  Transmission Date: 20250716
  Serious: Yes (Life-Threatening, Other)
  Sender: MYLAN
  Company Number: CN-MYLANLABS-2025M1039813

PATIENT
  Age: 45 Year
  Sex: Male
  Weight: 75 kg

DRUGS (3)
  1. CELEBREX [Suspect]
     Active Substance: CELECOXIB
     Indication: Intervertebral disc protrusion
     Dosage: 0.2 GRAM, BID
     Dates: start: 20250424, end: 20250425
  2. EPERISONE [Suspect]
     Active Substance: EPERISONE
     Indication: Intervertebral disc protrusion
     Dosage: 50 MILLIGRAM, TID
     Dates: start: 20250424, end: 20250425
  3. GADOBUTROL [Suspect]
     Active Substance: GADOBUTROL
     Indication: Back pain
     Dosage: 7.5 MILLILITER, QD
     Dates: start: 20250423, end: 20250423

REACTIONS (1)
  - Anaphylactic shock [Recovering/Resolving]

NARRATIVE: CASE EVENT DATE: 20250425
